FAERS Safety Report 11265939 (Version 2)
Quarter: 2015Q3

REPORT INFORMATION
  Report Type: Spontaneous
  Country: US (occurrence: US)
  Receive Date: 20150713
  Receipt Date: 20150908
  Transmission Date: 20151125
  Serious: Yes (Other)
  Sender: FDA-Public Use
  Company Number: US-BAYER-2015-374194

PATIENT
  Age: 18 Year
  Sex: Female

DRUGS (1)
  1. MIRENA [Suspect]
     Active Substance: LEVONORGESTREL
     Indication: CONTRACEPTION
     Dosage: 20 MCG/24HR, CONT
     Route: 015
     Dates: start: 20150602, end: 20150707

REACTIONS (14)
  - Pruritus [Recovered/Resolved]
  - Pelvic pain [Recovered/Resolved]
  - Swelling [Recovered/Resolved]
  - Headache [Recovered/Resolved]
  - Menstruation irregular [Not Recovered/Not Resolved]
  - Dyspareunia [Recovered/Resolved]
  - Crying [Recovered/Resolved]
  - Abdominal pain [Recovered/Resolved]
  - Vaginal infection [Recovered/Resolved]
  - Depressed mood [Recovered/Resolved]
  - Abdominal pain lower [Recovered/Resolved]
  - Vaginal discharge [Recovered/Resolved]
  - Anxiety [Recovered/Resolved]
  - Weight increased [Recovered/Resolved]

NARRATIVE: CASE EVENT DATE: 201506
